FAERS Safety Report 8176361-7 (Version None)
Quarter: 2012Q1

REPORT INFORMATION
  Report Type: 
  Country: None (occurrence: None)
  Receive Date: 20120301
  Receipt Date: 20120224
  Transmission Date: 20120608
  Serious: Yes (Life-Threatening, Other)
  Sender: FDA-Public Use
  Company Number: FR-ROXANE LABORATORIES, INC.-2012-RO-00731RO

PATIENT
  Age: 21 Year
  Sex: Female

DRUGS (2)
  1. METHADONE HCL [Suspect]
     Route: 055
  2. METHADONE HCL [Suspect]
     Route: 048

REACTIONS (5)
  - DECUBITUS ULCER [None]
  - NON-CARDIOGENIC PULMONARY OEDEMA [None]
  - STAPHYLOCOCCAL INFECTION [None]
  - ACUTE RESPIRATORY DISTRESS SYNDROME [None]
  - TOXICITY TO VARIOUS AGENTS [None]
